FAERS Safety Report 8905059 (Version 2)
Quarter: 2013Q1

REPORT INFORMATION
  Report Type: Spontaneous
  Country: US (occurrence: US)
  Receive Date: 20121109
  Receipt Date: 20130129
  Transmission Date: 20140127
  Serious: No
  Sender: FDA-Public Use
  Company Number: US-ASTRAZENECA-2012SE84745

PATIENT
  Age: 56 Year
  Sex: Female

DRUGS (2)
  1. SEROQUEL [Suspect]
     Indication: SUICIDAL IDEATION
     Route: 048
  2. SEROQUEL [Suspect]
     Indication: SUICIDAL IDEATION
     Route: 048

REACTIONS (3)
  - Adverse event [Unknown]
  - Drug effect increased [Unknown]
  - Intentional drug misuse [Unknown]
